FAERS Safety Report 24062489 (Version 1)
Quarter: 2024Q3

REPORT INFORMATION
  Report Type: Spontaneous
  Country: GB (occurrence: GB)
  Receive Date: 20240708
  Receipt Date: 20240708
  Transmission Date: 20241016
  Serious: Yes (Life-Threatening, Hospitalization, Disabling, Other)
  Sender: MYLAN
  Company Number: None

PATIENT
  Sex: Male
  Weight: 70 kg

DRUGS (4)
  1. MONTELUKAST [Suspect]
     Active Substance: MONTELUKAST SODIUM
     Indication: Asthma
     Dosage: 10 MILLIGRAM, QD (AT NIGHT)
     Route: 065
     Dates: end: 20240704
  2. VORTIOXETINE [Concomitant]
     Active Substance: VORTIOXETINE HYDROBROMIDE
     Indication: Obsessive-compulsive disorder
     Dosage: UNK
     Route: 065
  3. ALBUTEROL [Concomitant]
     Active Substance: ALBUTEROL
     Indication: Asthma
     Dosage: UNK
     Route: 065
  4. SOPROBEC [Concomitant]
     Indication: Asthma
     Dosage: UNK
     Route: 065

REACTIONS (9)
  - Affect lability [Not Recovered/Not Resolved]
  - Poor quality sleep [Not Recovered/Not Resolved]
  - Executive dysfunction [Not Recovered/Not Resolved]
  - Aggression [Not Recovered/Not Resolved]
  - Suicidal ideation [Not Recovered/Not Resolved]
  - Nightmare [Not Recovered/Not Resolved]
  - Depression [Not Recovered/Not Resolved]
  - Suicide attempt [Recovering/Resolving]
  - Anxiety [Not Recovered/Not Resolved]
